FAERS Safety Report 21137610 (Version 1)
Quarter: 2022Q3

REPORT INFORMATION
  Report Type: Spontaneous
  Country: GB (occurrence: GB)
  Receive Date: 20220727
  Receipt Date: 20220727
  Transmission Date: 20221027
  Serious: Yes (Other)
  Sender: FDA-Public Use
  Company Number: None

PATIENT
  Age: 71 Year
  Sex: Male
  Weight: 51 kg

DRUGS (4)
  1. ACLIDINIUM BROMIDE\FORMOTEROL FUMARATE [Suspect]
     Active Substance: ACLIDINIUM BROMIDE\FORMOTEROL FUMARATE
     Indication: Product used for unknown indication
     Dosage: INHALE 1 DOSE TWICE DAILY
     Route: 055
     Dates: start: 20220607
  2. FLUCLOXACILLIN [Concomitant]
     Active Substance: FLUCLOXACILLIN
     Indication: Product used for unknown indication
     Dosage: TAKE ONE CAPSULE FOUR TIMES A DAY FOR 7 DAYS
     Route: 065
     Dates: start: 20220525, end: 20220601
  3. BECLOMETHASONE\FORMOTEROL [Concomitant]
     Active Substance: BECLOMETHASONE\FORMOTEROL
     Indication: Product used for unknown indication
     Dosage: INHALE TWO PUFFS TWICE A DAY VIA A SPACER (EXTR...
     Route: 065
     Dates: start: 20200917, end: 20220607
  4. ALBUTEROL [Concomitant]
     Active Substance: ALBUTEROL
     Indication: Product used for unknown indication
     Dosage: 2PUFFS QDS A SREQUIRED, MAX 8 DAILY VIA SPACER
     Route: 065
     Dates: start: 20200131

REACTIONS (2)
  - Ulcer [Unknown]
  - Cough [Unknown]

NARRATIVE: CASE EVENT DATE: 20220707
